FAERS Safety Report 4924701-1 (Version None)
Quarter: 2006Q1

REPORT INFORMATION
  Report Type: 
  Country: None (occurrence: None)
  Receive Date: 20060222
  Receipt Date: 20060210
  Transmission Date: 20060701
  Serious: Yes (Other)
  Sender: FDA-Public Use
  Company Number: 2005140534

PATIENT
  Age: 32 Year
  Sex: Female
  Weight: 47.6277 kg

DRUGS (4)
  1. SINUTAB SINUS NON-DROWSY EXTRA STRENGTH (PARACETAMOL, PSEUDOEPHEDRINE) [Suspect]
     Indication: NASOPHARYNGITIS
     Dosage: ONE CAPLET ONCE; ORAL
     Route: 048
     Dates: start: 20051010, end: 20051010
  2. ACETAMINOPHEN [Suspect]
     Indication: NASOPHARYNGITIS
     Dosage: TABLETS, ORAL
     Route: 048
     Dates: start: 20051009
  3. NEO CITRAN FOR ADULTS (ASCORBIC ACID, PARACETAMOL, PHENIRAMINE MALEATE [Suspect]
     Dosage: UNSPECIFIED; ORAL
     Route: 048
  4. ANTIHISTAMINES [Concomitant]

REACTIONS (19)
  - ANXIETY [None]
  - ASTHENIA [None]
  - BACK PAIN [None]
  - BLOOD PRESSURE INCREASED [None]
  - CHEST PAIN [None]
  - DIZZINESS [None]
  - DYSPNOEA [None]
  - DYSSTASIA [None]
  - FEAR [None]
  - HEART RATE IRREGULAR [None]
  - INCOHERENT [None]
  - INSOMNIA [None]
  - LETHARGY [None]
  - NEUTROPHIL COUNT INCREASED [None]
  - ORAL INTAKE REDUCED [None]
  - SINUS TACHYCARDIA [None]
  - SINUSITIS [None]
  - TREMOR [None]
  - WHITE BLOOD CELL COUNT INCREASED [None]
